FAERS Safety Report 11760271 (Version 1)
Quarter: 2015Q4

REPORT INFORMATION
  Report Type: Spontaneous
  Country: RO (occurrence: RO)
  Receive Date: 20151120
  Receipt Date: 20151120
  Transmission Date: 20160304
  Serious: Yes (Other)
  Sender: FDA-Public Use
  Company Number: RO-ABBVIE-15K-135-1501173-00

PATIENT
  Age: 50 Year
  Sex: Female
  Weight: 78 kg

DRUGS (3)
  1. HUMIRA [Suspect]
     Active Substance: ADALIMUMAB
     Indication: PSORIASIS
     Route: 058
     Dates: start: 201507, end: 201510
  2. DEXAMETHASONE. [Concomitant]
     Active Substance: DEXAMETHASONE
  3. DEXAMETHASONE. [Concomitant]
     Active Substance: DEXAMETHASONE
     Indication: ANALGESIC INTERVENTION SUPPORTIVE THERAPY
     Dosage: DAILY
     Route: 042
     Dates: start: 20150828, end: 20150830

REACTIONS (4)
  - Injection site reaction [Recovered/Resolved]
  - Injection site pruritus [Unknown]
  - Injection site hypersensitivity [Unknown]
  - Panniculitis [Recovered/Resolved]

NARRATIVE: CASE EVENT DATE: 201509
